FAERS Safety Report 14153860 (Version 1)
Quarter: 2017Q4

REPORT INFORMATION
  Report Type: Spontaneous
  Country: GB (occurrence: GB)
  Receive Date: 20171102
  Receipt Date: 20171102
  Transmission Date: 20180321
  Serious: Yes (Life-Threatening, Hospitalization, Other)
  Sender: FDA-Public Use
  Company Number: GB-PURDUE-GBR-2017-0050163

PATIENT

DRUGS (20)
  1. ASPIRIN. [Concomitant]
     Active Substance: ASPIRIN
     Dosage: 75 MG, DAILY
     Route: 048
  2. CARBOCISTEINE [Concomitant]
     Active Substance: CARBOCYSTEINE
     Indication: LOWER RESPIRATORY TRACT INFECTION
     Dosage: 750 MG, TID
     Route: 048
     Dates: start: 20171013
  3. BUDESONIDE W/FORMOTEROL FUMARATE [Concomitant]
     Active Substance: BUDESONIDE\FORMOTEROL FUMARATE
     Dosage: 1 DF, BID
     Route: 050
  4. NIFEDIPINE. [Concomitant]
     Active Substance: NIFEDIPINE
     Dosage: 5 MG, BID
     Route: 048
  5. SOLIFENACIN [Concomitant]
     Active Substance: SOLIFENACIN
     Dosage: 5 MG, DAILY
     Route: 048
     Dates: start: 20171013
  6. GLYCERYL TRINITRATE [Concomitant]
     Active Substance: NITROGLYCERIN
     Dosage: 1 DF, PRN
     Route: 060
  7. OMEPRAZOLE. [Concomitant]
     Active Substance: OMEPRAZOLE
     Dosage: 20 MG, DAILY
     Route: 048
  8. PREDNISOLONE. [Concomitant]
     Active Substance: PREDNISOLONE
     Dosage: 30 MG, DAILY
     Route: 048
     Dates: start: 20171005, end: 20171010
  9. UNIPHYLLIN CONTINUS [Suspect]
     Active Substance: THEOPHYLLINE ANHYDROUS
     Indication: LOWER RESPIRATORY TRACT INFECTION
     Dosage: 400 MG, BID
     Route: 048
     Dates: start: 20171013
  10. FUROSEMIDE. [Concomitant]
     Active Substance: FUROSEMIDE
     Dosage: 20 MG, DAILY
     Route: 048
  11. TAMSULOSIN [Concomitant]
     Active Substance: TAMSULOSIN
     Dosage: 400 MCG, DAILY
     Route: 048
  12. LACTULOSE. [Concomitant]
     Active Substance: LACTULOSE
     Dosage: UNK, PRN
     Route: 048
  13. MONOMIL [Concomitant]
     Active Substance: ISOSORBIDE MONONITRATE
     Dosage: 60 MG, DAILY
     Route: 048
  14. CLARITHROMYCIN. [Interacting]
     Active Substance: CLARITHROMYCIN
     Indication: LOWER RESPIRATORY TRACT INFECTION
     Dosage: 500 MG, BID
     Route: 048
     Dates: start: 20171013
  15. AMITRIPTYLINE [Concomitant]
     Active Substance: AMITRIPTYLINE
     Route: 048
  16. BISACODYL. [Concomitant]
     Active Substance: BISACODYL
     Dosage: 5 MG, PRN
     Route: 048
  17. DOXYCYCLINE. [Concomitant]
     Active Substance: DOXYCYCLINE
     Dosage: 100 MG, BID
     Route: 048
     Dates: start: 20171005, end: 20171012
  18. HYOSCINE BUTYLBROMIDE [Concomitant]
     Active Substance: BUTYLSCOPOLAMINE
     Dosage: 20 MG, PRN
     Route: 048
  19. TERBUTALINE [Concomitant]
     Active Substance: TERBUTALINE
     Dosage: 1 DF, PRN
     Route: 055
  20. TIOTROPIUM [Concomitant]
     Active Substance: TIOTROPIUM
     Dosage: 10 MCG, DAILY
     Route: 055

REACTIONS (3)
  - Toxicity to various agents [Recovering/Resolving]
  - Drug interaction [Unknown]
  - Clonic convulsion [Recovering/Resolving]

NARRATIVE: CASE EVENT DATE: 20171016
